FAERS Safety Report 23741929 (Version 1)
Quarter: 2024Q2

REPORT INFORMATION
  Report Type: Report from Study
  Country: US (occurrence: None)
  Receive Date: 20240415
  Receipt Date: 20240415
  Transmission Date: 20240716
  Serious: Yes (Death, Hospitalization)
  Sender: FDA-Public Use
  Company Number: 2020SE59303

PATIENT
  Age: 25263 Day
  Sex: Male
  Weight: 54.4 kg

DRUGS (5)
  1. TAGRISSO [Suspect]
     Active Substance: OSIMERTINIB
     Indication: Lung neoplasm malignant
     Route: 048
     Dates: start: 201908
  2. ELIQUIS [Concomitant]
     Active Substance: APIXABAN
     Indication: Thrombosis
     Dosage: UNKNOWN
     Route: 065
     Dates: start: 202002
  3. GABAPENTIN [Concomitant]
     Active Substance: GABAPENTIN
     Indication: Pain
     Dosage: UNKNOWN
     Route: 065
     Dates: start: 202002
  4. TYLENOL [Concomitant]
     Active Substance: ACETAMINOPHEN
     Indication: Pain
     Dosage: EVERY 4 - 6 HOURS
     Route: 048
  5. AMIODARONE [Concomitant]
     Active Substance: AMIODARONE
     Indication: Heart rate abnormal
     Dosage: UNKNOWN
     Route: 065
     Dates: start: 202003

REACTIONS (4)
  - Thrombosis [Fatal]
  - Heart rate abnormal [Fatal]
  - Arthralgia [Fatal]
  - Malignant neoplasm progression [Fatal]

NARRATIVE: CASE EVENT DATE: 20200101
